FAERS Safety Report 7874775-3 (Version None)
Quarter: 2011Q4

REPORT INFORMATION
  Report Type: 
  Country: None (occurrence: None)
  Receive Date: 20111031
  Receipt Date: 20111017
  Transmission Date: 20120403
  Serious: Yes (Hospitalization)
  Sender: FDA-Public Use
  Company Number: US-ELI_LILLY_AND_COMPANY-US201110005174

PATIENT
  Sex: Female

DRUGS (6)
  1. HUMULIN R [Suspect]
     Dosage: 5 U, EACH EVENING
  2. HUMULIN R [Suspect]
     Dosage: 25 U, TID
  3. HUMULIN R [Suspect]
     Dosage: 5 U, EACH EVENING
  4. HUMULIN R [Suspect]
     Indication: DIABETES MELLITUS
     Dosage: 25 U, TID
  5. HUMULIN R [Suspect]
     Dosage: 20 U, EACH EVENING
  6. HUMULIN R [Suspect]
     Dosage: 20 U, EACH EVENING

REACTIONS (5)
  - HOSPITALISATION [None]
  - DRUG INEFFECTIVE [None]
  - MALAISE [None]
  - BLOOD GLUCOSE INCREASED [None]
  - MEDICATION ERROR [None]
